FAERS Safety Report 9395849 (Version 2)
Quarter: 2013Q3

REPORT INFORMATION
  Report Type: Spontaneous
  Country: IT (occurrence: IT)
  Receive Date: 20130711
  Receipt Date: 20130821
  Transmission Date: 20140515
  Serious: Yes (Hospitalization)
  Sender: FDA-Public Use
  Company Number: IT-TEVA-416629ISR

PATIENT
  Age: 64 Year
  Sex: Male

DRUGS (12)
  1. CARBOPLATIN [Suspect]
     Indication: LUNG NEOPLASM MALIGNANT
     Route: 042
     Dates: start: 20121101, end: 20130227
  2. GEMCITABINE [Suspect]
     Indication: LUNG NEOPLASM MALIGNANT
     Route: 042
     Dates: start: 20121101, end: 20130227
  3. DILZENE 60MG [Concomitant]
  4. IBUSTRIN 200MG [Concomitant]
  5. DEPONIT 5MG/24H [Concomitant]
  6. TAREG 80MG [Concomitant]
  7. FLIXOTIDE 500MCG/2ML [Concomitant]
  8. SPIRIVA RESPIMAT 2.5MCG [Concomitant]
  9. ANSIOLIN 0.5% [Concomitant]
  10. PARACODINA 10.25MG/ML [Concomitant]
  11. TACHIDOL ADULTI 500MG/30MG [Concomitant]
  12. ANTRA 20MG [Concomitant]

REACTIONS (3)
  - Anaemia [Recovering/Resolving]
  - Thrombocytopenia [Recovered/Resolved]
  - Epistaxis [Recovering/Resolving]
